FAERS Safety Report 17142974 (Version 1)
Quarter: 2019Q4

REPORT INFORMATION
  Report Type: Spontaneous
  Country: US (occurrence: US)
  Receive Date: 20191211
  Receipt Date: 20191211
  Transmission Date: 20200122
  Serious: Yes (Death)
  Sender: FDA-Public Use
  Company Number: US-PURDUE PHARMA-USA-2019-0147523

PATIENT
  Age: 66 Year
  Sex: Female

DRUGS (1)
  1. DILAUDID [Suspect]
     Active Substance: HYDROMORPHONE HYDROCHLORIDE
     Indication: PANCREATIC CARCINOMA
     Dosage: UNK
     Route: 048

REACTIONS (1)
  - Overdose [Fatal]
